FAERS Safety Report 24647476 (Version 1)
Quarter: 2024Q4

REPORT INFORMATION
  Report Type: Spontaneous
  Country: US (occurrence: None)
  Receive Date: 20241120
  Receipt Date: 20241120
  Transmission Date: 20250115
  Serious: Yes (Other)
  Sender: Public
  Company Number: None

PATIENT
  Age: 55 Year
  Sex: Male
  Weight: 119.8 kg

DRUGS (1)
  1. PROTAMINE [Suspect]
     Active Substance: PROTAMINE
     Indication: Procoagulant therapy
     Dosage: OTHER FREQUENCY : ONCE;?
     Route: 040
     Dates: start: 20241114, end: 20241114

REACTIONS (1)
  - Anaphylactic reaction [None]

NARRATIVE: CASE EVENT DATE: 20241114
